FAERS Safety Report 6958855-2 (Version None)
Quarter: 2010Q3

REPORT INFORMATION
  Report Type: 
  Country: None (occurrence: None)
  Receive Date: 20100831
  Receipt Date: 20100813
  Transmission Date: 20110219
  Serious: Yes (Other)
  Sender: FDA-Public Use
  Company Number: US-BAYER-201030602NA

PATIENT
  Age: 61 Year
  Sex: Female

DRUGS (3)
  1. BETASERON [Suspect]
     Indication: MULTIPLE SCLEROSIS
     Dosage: TOTAL DAILY DOSE: 2 MIU
     Route: 058
     Dates: start: 20100804
  2. CLONAZEPAM [Concomitant]
     Dosage: AS USED: 1 MG
     Dates: start: 20100811
  3. PROZAC [Concomitant]
     Indication: DEPRESSION
     Dates: start: 19800101

REACTIONS (7)
  - AFFECT LABILITY [None]
  - AGGRESSION [None]
  - ANGER [None]
  - CONFUSIONAL STATE [None]
  - HYPERTENSION [None]
  - MEMORY IMPAIRMENT [None]
  - TEARFULNESS [None]
